FAERS Safety Report 9548764 (Version 1)
Quarter: 2013Q2

REPORT INFORMATION
  Report Type: Spontaneous
  Country: US (occurrence: None)
  Receive Date: 20130607
  Receipt Date: 20130607
  Transmission Date: 20140414
  Serious: Yes (Hospitalization)
  Sender: FDA-Public Use
  Company Number: 086128

PATIENT
  Sex: 0

DRUGS (1)
  1. ROTIGOTINE [Suspect]

REACTIONS (2)
  - Hospitalisation [None]
  - Adverse drug reaction [None]
